FAERS Safety Report 5571268-3 (Version None)
Quarter: 2007Q4

REPORT INFORMATION
  Report Type: 
  Country: None (occurrence: None)
  Receive Date: 20071221
  Receipt Date: 20070402
  Transmission Date: 20080405
  Serious: No
  Sender: FDA-Public Use
  Company Number: A0646475A

PATIENT
  Age: 42 Year
  Sex: Female
  Weight: 75 kg

DRUGS (1)
  1. FLUTICASONE PROPIONATE [Suspect]
     Indication: CHRONIC SINUSITIS
     Dosage: 4SPR PER DAY
     Route: 045

REACTIONS (2)
  - HEADACHE [None]
  - SINUSITIS [None]
